FAERS Safety Report 8541871-7 (Version None)
Quarter: 2012Q3

REPORT INFORMATION
  Report Type: 
  Country: None (occurrence: None)
  Receive Date: 20120726
  Receipt Date: 20120202
  Transmission Date: 20120928
  Serious: No
  Sender: FDA-Public Use
  Company Number: US-ASTRAZENECA-2011SE54785

PATIENT
  Age: 44 Year
  Sex: Female
  Weight: 79.4 kg

DRUGS (5)
  1. SEROQUEL [Suspect]
     Indication: SLEEP DISORDER
     Route: 048
     Dates: start: 20060101
  2. SEROQUEL [Suspect]
     Route: 048
     Dates: start: 20100101
  3. SEROQUEL [Suspect]
     Indication: BIPOLAR DISORDER
     Route: 048
     Dates: start: 20060101
  4. SEROQUEL [Suspect]
     Route: 048
     Dates: start: 20100101
  5. AMBIEN [Concomitant]
     Indication: SLEEP DISORDER

REACTIONS (8)
  - WRONG TECHNIQUE IN DRUG USAGE PROCESS [None]
  - INSOMNIA [None]
  - DEPRESSED MOOD [None]
  - EATING DISORDER [None]
  - OFF LABEL USE [None]
  - DRUG DOSE OMISSION [None]
  - AFFECT LABILITY [None]
  - CRYING [None]
